FAERS Safety Report 15021033 (Version 7)
Quarter: 2018Q4

REPORT INFORMATION
  Report Type: Report from Study
  Country: JP (occurrence: JP)
  Receive Date: 20180618
  Receipt Date: 20181221
  Transmission Date: 20190204
  Serious: Yes (Hospitalization)
  Sender: FDA-Public Use
  Company Number: JP-EISAI MEDICAL RESEARCH-EC-2018-041271

PATIENT
  Age: 67 Year
  Sex: Female
  Weight: 39 kg

DRUGS (32)
  1. LENVATINIB [Suspect]
     Active Substance: LENVATINIB
     Route: 048
     Dates: start: 20180507, end: 20180516
  2. AZUNOL GARGLE [Concomitant]
  3. DENOTAS [Concomitant]
     Active Substance: CALCIUM CARBONATE\CHOLECALCIFEROL\MAGNESIUM CARBONATE
  4. LENVATINIB [Suspect]
     Active Substance: LENVATINIB
     Indication: CLEAR CELL RENAL CELL CARCINOMA
     Route: 048
     Dates: start: 20180419, end: 20180428
  5. KERATINAMIN [Concomitant]
     Active Substance: UREA
  6. CALONAL [Concomitant]
     Active Substance: ACETAMINOPHEN
  7. JANUVIA [Concomitant]
     Active Substance: SITAGLIPTIN PHOSPHATE
  8. HIRUDOID [Concomitant]
     Active Substance: GLYCOSAMINOGLYCANS
  9. ZOLPIDEM [Concomitant]
     Active Substance: ZOLPIDEM\ZOLPIDEM TARTRATE
  10. RANMARK [Concomitant]
     Active Substance: DENOSUMAB
  11. KETOPROFEN. [Concomitant]
     Active Substance: KETOPROFEN
  12. MAGNESIUM OXIDE. [Concomitant]
     Active Substance: MAGNESIUM OXIDE
  13. SHIMBUTO [Concomitant]
     Active Substance: HERBALS
  14. LENVATINIB [Suspect]
     Active Substance: LENVATINIB
     Route: 048
     Dates: start: 20180706, end: 20180822
  15. THYRADIN S [Concomitant]
     Active Substance: LEVOTHYROXINE SODIUM
  16. LANSOPRAZOLE. [Concomitant]
     Active Substance: LANSOPRAZOLE
  17. MOHRUS TAPE [Concomitant]
     Active Substance: KETOPROFEN
  18. GLIMEPIRIDE. [Concomitant]
     Active Substance: GLIMEPIRIDE
  19. PEMBROLIZUMAB. [Suspect]
     Active Substance: PEMBROLIZUMAB
     Indication: CLEAR CELL RENAL CELL CARCINOMA
     Route: 041
     Dates: start: 20180419, end: 20180531
  20. LAC-B [Concomitant]
     Active Substance: BIFIDOBACTERIUM SPP.
  21. DAIPHEN [Concomitant]
     Active Substance: SULFAMETHOXAZOLE\TRIMETHOPRIM
  22. LENVATINIB [Suspect]
     Active Substance: LENVATINIB
     Route: 048
     Dates: start: 20180524, end: 20180610
  23. OXYCONTIN TR [Concomitant]
  24. AMLODIPINE [Concomitant]
     Active Substance: AMLODIPINE BESYLATE
  25. PIOGLITAZONE. [Concomitant]
     Active Substance: PIOGLITAZONE
  26. NOVAMIN (PROCHLORPERAZINE) [Concomitant]
     Active Substance: PROCHLORPERAZINE
  27. ETODOLAC. [Concomitant]
     Active Substance: ETODOLAC
  28. OXINORM [Concomitant]
  29. ALBUMIN TANNATE [Concomitant]
     Active Substance: ALBUMIN BOVINE\TANNIC ACID
  30. PREDNISOLONE. [Concomitant]
     Active Substance: PREDNISOLONE
  31. ALFACALCIDOL [Concomitant]
     Active Substance: ALFACALCIDOL
  32. ASPARA-CA [Concomitant]
     Active Substance: CALCIUM ASPARTATE

REACTIONS (2)
  - Cancer pain [Not Recovered/Not Resolved]
  - Enterocolitis [Recovering/Resolving]

NARRATIVE: CASE EVENT DATE: 20180611
